FAERS Safety Report 13155167 (Version 1)
Quarter: 2017Q1

REPORT INFORMATION
  Report Type: Spontaneous
  Country: US (occurrence: US)
  Receive Date: 20170126
  Receipt Date: 20170126
  Transmission Date: 20170428
  Serious: No
  Sender: FDA-Public Use
  Company Number: US-PFIZER INC-2017034416

PATIENT
  Sex: Male

DRUGS (1)
  1. XELJANZ [Suspect]
     Active Substance: TOFACITINIB CITRATE
     Dosage: ONE TABLET ONCE DAILY

REACTIONS (12)
  - Red blood cell sedimentation rate increased [Unknown]
  - Osteoarthritis [Unknown]
  - Anaemia [Unknown]
  - Arthropathy [Unknown]
  - Arthralgia [Unknown]
  - C-reactive protein increased [Unknown]
  - Musculoskeletal stiffness [Unknown]
  - Underdose [Unknown]
  - Synovitis [Unknown]
  - Pain in extremity [Unknown]
  - Drug ineffective [Unknown]
  - Dry eye [Unknown]
